FAERS Safety Report 8574912-1 (Version None)
Quarter: 2012Q2

REPORT INFORMATION
  Report Type: 
  Country: None (occurrence: None)
  Receive Date: 20120423
  Receipt Date: 20091106
  Transmission Date: 20120825
  Serious: Yes (Hospitalization, Other)
  Sender: FDA-Public Use
  Company Number: PHEH2009US15366

PATIENT
  Age: 63 Year
  Sex: Male

DRUGS (1)
  1. EXJADE [Suspect]
     Indication: RED BLOOD CELL ABNORMALITY
     Dosage: 2000 MG, QD, ORAL
     Route: 048
     Dates: start: 20090501, end: 20090501

REACTIONS (2)
  - RENAL DISORDER [None]
  - HEPATIC ENZYME INCREASED [None]
